FAERS Safety Report 6847547-6 (Version None)
Quarter: 2010Q3

REPORT INFORMATION
  Report Type: 
  Country: None (occurrence: None)
  Receive Date: 20100716
  Receipt Date: 20100707
  Transmission Date: 20110219
  Serious: Yes (Other)
  Sender: FDA-Public Use
  Company Number: US-ASTRAZENECA-2008UW03036

PATIENT
  Age: 623 Month
  Sex: Female
  Weight: 86.2 kg

DRUGS (9)
  1. ARIMIDEX [Suspect]
     Indication: BREAST CANCER
     Route: 048
     Dates: start: 20070101
  2. NEXIUM [Concomitant]
  3. LIPITOR [Concomitant]
  4. FIORICET [Concomitant]
  5. IBUPROFEN [Concomitant]
  6. PRELIEF [Concomitant]
  7. LEVOTHYROXINE SODIUM [Concomitant]
  8. ELMERON [Concomitant]
  9. TRAZODONE HYDROCHLORIDE [Concomitant]

REACTIONS (5)
  - ALOPECIA [None]
  - ARTHRALGIA [None]
  - ILL-DEFINED DISORDER [None]
  - LOSS OF LIBIDO [None]
  - MUSCULOSKELETAL PAIN [None]
